FAERS Safety Report 17229530 (Version 1)
Quarter: 2020Q1

REPORT INFORMATION
  Report Type: Report from Study
  Country: CL (occurrence: CL)
  Receive Date: 20200103
  Receipt Date: 20200103
  Transmission Date: 20200409
  Serious: Yes (Disabling, Other)
  Sender: FDA-Public Use
  Company Number: NVSC2019CL010730

PATIENT
  Age: 55 Year
  Sex: Female

DRUGS (4)
  1. COSENTYX [Suspect]
     Active Substance: SECUKINUMAB
     Indication: PSORIATIC ARTHROPATHY
     Dosage: 150 MG (BATCH NUMBER WAS UNKNOWN)
     Route: 058
     Dates: start: 20190822
  2. ILTUX HCT [Concomitant]
     Indication: PRODUCT USED FOR UNKNOWN INDICATION
     Dosage: 12.5 MG, QD
     Route: 048
  3. SENEXON [Concomitant]
     Active Substance: SENNOSIDES A AND B
     Indication: PRODUCT USED FOR UNKNOWN INDICATION
     Dosage: 150 MG, QD
     Route: 048
     Dates: start: 20190101
  4. DOOX [Concomitant]
     Active Substance: NEBIVOLOL HYDROCHLORIDE
     Indication: PRODUCT USED FOR UNKNOWN INDICATION
     Dosage: 2.5 MG, QD
     Route: 048
     Dates: start: 20190101

REACTIONS (19)
  - Blood triglycerides increased [Unknown]
  - Insomnia [Unknown]
  - Abdominal distension [Unknown]
  - Night sweats [Unknown]
  - Depression [Unknown]
  - Peripheral swelling [Unknown]
  - Joint swelling [Unknown]
  - Flatulence [Unknown]
  - Dermatitis allergic [Unknown]
  - Skin haemorrhage [Unknown]
  - Skin discolouration [Unknown]
  - Rectal haemorrhage [Unknown]
  - Skin burning sensation [Unknown]
  - Weight increased [Unknown]
  - Bronchitis [Not Recovered/Not Resolved]
  - Tinea pedis [Unknown]
  - Psoriasis [Unknown]
  - Lower respiratory tract congestion [Unknown]
  - Abdominal pain [Unknown]

NARRATIVE: CASE EVENT DATE: 20190801
